FAERS Safety Report 4744812-3 (Version None)
Quarter: 2005Q3

REPORT INFORMATION
  Report Type: 
  Country: None (occurrence: None)
  Receive Date: 20050815
  Receipt Date: 20050714
  Transmission Date: 20060218
  Serious: Yes (Disabling)
  Sender: FDA-Public Use
  Company Number: 200516977GDDC

PATIENT
  Age: 66 Year
  Sex: Female

DRUGS (6)
  1. ARAVA [Suspect]
     Indication: RHEUMATOID ARTHRITIS
     Route: 048
     Dates: start: 20000313, end: 20050709
  2. METHOTREXATE [Concomitant]
     Dosage: DOSE: UNK
  3. DICLOFENAC [Concomitant]
     Dosage: DOSE: UNK
  4. FOLIC ACID [Concomitant]
     Route: 048
  5. CALTRATE [Concomitant]
     Route: 048
  6. COVERSYL [Concomitant]
     Indication: HYPERTENSION
     Dosage: DOSE: UNK
     Route: 048

REACTIONS (3)
  - GALLBLADDER DISORDER [None]
  - LABORATORY TEST ABNORMAL [None]
  - LIVER DISORDER [None]
